FAERS Safety Report 6692958-5 (Version None)
Quarter: 2010Q2

REPORT INFORMATION
  Report Type: 
  Country: None (occurrence: None)
  Receive Date: 20100419
  Receipt Date: 20100405
  Transmission Date: 20101027
  Serious: Yes (Other)
  Sender: FDA-Public Use
  Company Number: 009456

PATIENT
  Age: 50 Year
  Sex: Female

DRUGS (7)
  1. BUSULFEX [Suspect]
     Indication: STEM CELL TRANSPLANT
     Dosage: INTRAVENOUS
     Route: 042
  2. CYCLOPHOSPHAMIDE [Concomitant]
  3. ANTI-THYMOCYTE GLOBULIN NOS [Concomitant]
  4. IMATINIB MESYLATE [Concomitant]
  5. CYCLOSPORINE [Concomitant]
  6. METHOTREXATE [Concomitant]
  7. NILOTINIB (NILOTINIB) [Concomitant]

REACTIONS (4)
  - CHRONIC GRAFT VERSUS HOST DISEASE [None]
  - CHRONIC MYELOID LEUKAEMIA [None]
  - DISEASE PROGRESSION [None]
  - PYREXIA [None]
